FAERS Safety Report 4629879-5 (Version None)
Quarter: 2005Q2

REPORT INFORMATION
  Report Type: 
  Country: None (occurrence: None)
  Receive Date: 20050406
  Receipt Date: 20050322
  Transmission Date: 20051028
  Serious: Yes (Other)
  Sender: FDA-Public Use
  Company Number: DE_050315538

PATIENT
  Age: 66 Year
  Sex: Female

DRUGS (1)
  1. YENTREVE (DULOXETINE HYDROCHLORIDE) [Suspect]
     Indication: STRESS INCONTINENCE

REACTIONS (8)
  - ANXIETY [None]
  - DIZZINESS [None]
  - DRY MOUTH [None]
  - GAIT DISTURBANCE [None]
  - HYPERTENSION [None]
  - PALPITATIONS [None]
  - RESTLESSNESS [None]
  - VISUAL DISTURBANCE [None]
